FAERS Safety Report 17376329 (Version 1)
Quarter: 2020Q1

REPORT INFORMATION
  Report Type: Spontaneous
  Country: US (occurrence: US)
  Receive Date: 20200205
  Receipt Date: 20200205
  Transmission Date: 20200409
  Serious: No
  Sender: FDA-Public Use
  Company Number: None

PATIENT
  Age: 61 Year
  Sex: Female

DRUGS (1)
  1. VERZENIO [Suspect]
     Active Substance: ABEMACICLIB
     Indication: BREAST CANCER FEMALE
     Route: 048
     Dates: start: 20200107

REACTIONS (7)
  - Facial bones fracture [None]
  - Asthenia [None]
  - Tooth injury [None]
  - Tremor [None]
  - Cognitive disorder [None]
  - Fall [None]
  - Muscle fatigue [None]

NARRATIVE: CASE EVENT DATE: 20200204
